FAERS Safety Report 9538906 (Version 1)
Quarter: 2013Q3

REPORT INFORMATION
  Report Type: Spontaneous
  Country: US (occurrence: US)
  Receive Date: 20130920
  Receipt Date: 20130920
  Transmission Date: 20140515
  Serious: Yes (Other)
  Sender: FDA-Public Use
  Company Number: US-PFIZER INC-2013264535

PATIENT
  Age: 57 Year
  Sex: Male

DRUGS (10)
  1. VIAGRA [Suspect]
     Indication: ERECTILE DYSFUNCTION
     Dosage: 25 MG, 1 TABLET PRIOR TO SEXUAL ACTIVITY
     Route: 048
  2. TERBINAFINE [Concomitant]
     Dosage: 250 MG, 1X/DAY
     Route: 048
  3. PLAVIX [Concomitant]
     Dosage: 75 MG, 1X/DAY
     Route: 048
  4. ASA [Concomitant]
     Dosage: 325 MG, EVERY MORNING
  5. PROTONIX [Concomitant]
     Dosage: 40 MG, 1X/DAY
     Route: 048
  6. LISINOPRIL [Concomitant]
     Dosage: 20 MG, 1X/DAY
     Route: 048
  7. HYDROCHLOROTHIAZIDE [Concomitant]
     Dosage: 12.5 MG, 1X/DAY
     Route: 048
  8. METFORMIN [Concomitant]
     Dosage: 500 MG, 1X/DAY
     Route: 048
  9. PRAVACHOL [Concomitant]
     Dosage: 80 MG, 1X/DAY AT BEDTIME
     Route: 048
  10. GEMFIBROZIL [Concomitant]
     Dosage: 600 MG, 2X/DAY
     Route: 048

REACTIONS (3)
  - Diabetes mellitus [Unknown]
  - Erectile dysfunction [Unknown]
  - Drug effect decreased [Unknown]
